FAERS Safety Report 4886664-7 (Version None)
Quarter: 2006Q1

REPORT INFORMATION
  Report Type: 
  Country: None (occurrence: None)
  Receive Date: 20060120
  Receipt Date: 20060113
  Transmission Date: 20060701
  Serious: Yes (Death)
  Sender: FDA-Public Use
  Company Number: US-BRISTOL-MYERS SQUIBB COMPANY-13249453

PATIENT
  Sex: Male

DRUGS (2)
  1. GLUCOPHAGE [Suspect]
  2. PLAVIX [Suspect]

REACTIONS (1)
  - DEATH [None]
